FAERS Safety Report 6970728-8 (Version None)
Quarter: 2010Q3

REPORT INFORMATION
  Report Type: 
  Country: None (occurrence: None)
  Receive Date: 20100908
  Receipt Date: 20100830
  Transmission Date: 20110219
  Serious: Yes (Life-Threatening, Hospitalization, Other)
  Sender: FDA-Public Use
  Company Number: JP-ROCHE-720055

PATIENT
  Sex: Female

DRUGS (15)
  1. ACTEMRA [Suspect]
     Indication: RHEUMATOID ARTHRITIS
     Dosage: ROUTE: INTRAVENOUS DRIP
     Route: 041
     Dates: start: 20090918, end: 20090918
  2. ACTEMRA [Suspect]
     Dosage: ROUTE: INTRAVENOUS DRIP
     Route: 041
     Dates: start: 20091016, end: 20091016
  3. ACTEMRA [Suspect]
     Dosage: ROUTE: INTRAVENOUS DRIP
     Route: 041
     Dates: start: 20091113, end: 20091113
  4. ACTEMRA [Suspect]
     Route: 041
     Dates: start: 20091211, end: 20091211
  5. ACTEMRA [Suspect]
     Dosage: ROUTE: INTRAVENOUS DRIP
     Route: 041
     Dates: start: 20100115, end: 20100115
  6. ACTEMRA [Suspect]
     Route: 041
     Dates: start: 20100409, end: 20100728
  7. METHOTREXATE [Suspect]
     Indication: RHEUMATOID ARTHRITIS
     Dosage: DOSE FORM: PERORAL AGENT
     Route: 048
     Dates: end: 20090907
  8. METHOTREXATE [Suspect]
     Dosage: DOSE FORM: PERORAL AGENT
     Route: 048
     Dates: start: 20090908, end: 20100728
  9. PREDNISOLONE [Suspect]
     Indication: RHEUMATOID ARTHRITIS
     Dosage: FORM: PERORAL AGENT
     Route: 048
  10. FOLIAMIN [Concomitant]
     Route: 048
  11. CELCOX [Concomitant]
     Route: 048
  12. OMEPRAL [Concomitant]
     Route: 048
  13. BONALON [Concomitant]
     Route: 048
     Dates: end: 20100728
  14. ONEALFA [Concomitant]
     Route: 048
     Dates: end: 20100803
  15. MAINTATE [Concomitant]
     Route: 048
     Dates: end: 20100803

REACTIONS (6)
  - CARDIAC FAILURE [None]
  - NAUSEA [None]
  - PANCYTOPENIA [None]
  - PNEUMOCYSTIS JIROVECI PNEUMONIA [None]
  - PNEUMONIA CRYPTOCOCCAL [None]
  - RENAL IMPAIRMENT [None]
